FAERS Safety Report 5093743-0 (Version None)
Quarter: 2006Q3

REPORT INFORMATION
  Report Type: 
  Country: None (occurrence: None)
  Receive Date: 20060728
  Receipt Date: 20060427
  Transmission Date: 20061208
  Serious: No
  Sender: FDA-Public Use
  Company Number: 252729

PATIENT
  Age: 35 Year
  Sex: Female
  Weight: 61.2 kg

DRUGS (2)
  1. LEVEMIR [Suspect]
     Indication: DIABETES MELLITUS INSULIN-DEPENDENT
     Dosage: 15 IU, QD, SUBCUTANEOUS
     Route: 058
     Dates: start: 20060301
  2. HUMULIN R         (HUMAN INSULIN) [Concomitant]

REACTIONS (3)
  - BLOOD GLUCOSE DECREASED [None]
  - INJECTION SITE ERYTHEMA [None]
  - WEIGHT INCREASED [None]
